FAERS Safety Report 13682818 (Version 1)
Quarter: 2017Q2

REPORT INFORMATION
  Report Type: Spontaneous
  Country: US (occurrence: US)
  Receive Date: 20170623
  Receipt Date: 20170623
  Transmission Date: 20170830
  Serious: No
  Sender: FDA-Public Use
  Company Number: US-MALLINCKRODT-T201605975

PATIENT
  Age: 29 Year
  Sex: Female

DRUGS (3)
  1. H.P. ACTHAR [Suspect]
     Active Substance: CORTICOTROPIN
     Indication: PROTEINURIA
     Dosage: 80 UNITS TWICE A WEEK
     Route: 058
     Dates: start: 201609
  2. H.P. ACTHAR [Suspect]
     Active Substance: CORTICOTROPIN
     Indication: GLOMERULONEPHRITIS MINIMAL LESION
     Dosage: 20 UNITS TWICE A WEEK
     Route: 058
     Dates: start: 20170426
  3. H.P. ACTHAR [Suspect]
     Active Substance: CORTICOTROPIN
     Indication: NEPHROTIC SYNDROME
     Dosage: 40 UNITS TWICE A WEEK
     Route: 058

REACTIONS (5)
  - Pruritus [Unknown]
  - Injection site urticaria [Unknown]
  - Injection site pruritus [Unknown]
  - Hypoaesthesia [Unknown]
  - Injection site rash [Unknown]

NARRATIVE: CASE EVENT DATE: 20161011
